FAERS Safety Report 6470330-0 (Version None)
Quarter: 2009Q4

REPORT INFORMATION
  Report Type: 
  Country: None (occurrence: None)
  Receive Date: 20091203
  Receipt Date: 20091126
  Transmission Date: 20100525
  Serious: Yes (Other)
  Sender: FDA-Public Use
  Company Number: AU-MERCK-0911USA04802

PATIENT

DRUGS (1)
  1. FOSAMAX PLUS D [Suspect]
     Route: 048

REACTIONS (1)
  - FEMUR FRACTURE [None]
